FAERS Safety Report 18910984 (Version 1)
Quarter: 2021Q1

REPORT INFORMATION
  Report Type: Spontaneous
  Country: US (occurrence: US)
  Receive Date: 20210218
  Receipt Date: 20210218
  Transmission Date: 20210420
  Serious: No
  Sender: FDA-Public Use
  Company Number: US-SA-2021SA043175

PATIENT
  Sex: Female

DRUGS (1)
  1. ALLEGRA ALLERGY [Suspect]
     Active Substance: FEXOFENADINE HYDROCHLORIDE
     Indication: RASH PRURITIC
     Dosage: 1 DF, BID (ONE PILL OF ALLEGRA IN THE MORNING AND THEN IN THE NIGHT)
     Route: 065

REACTIONS (3)
  - COVID-19 [Unknown]
  - Hypertension [Unknown]
  - Memory impairment [Unknown]
